FAERS Safety Report 6287281-7 (Version None)
Quarter: 2009Q3

REPORT INFORMATION
  Report Type: 
  Country: None (occurrence: None)
  Receive Date: 20090728
  Receipt Date: 20090727
  Transmission Date: 20100115
  Serious: Yes (Hospitalization)
  Sender: FDA-Public Use
  Company Number: US-ROXANE LABORATORIES, INC.-2009-RO-00753RO

PATIENT
  Sex: Female

DRUGS (5)
  1. METHADONE HCL [Suspect]
     Route: 048
  2. COPAXONE [Suspect]
     Indication: MULTIPLE SCLEROSIS
     Route: 058
     Dates: start: 20090331
  3. ESOMEPRAZOLE MAGNESIUM [Concomitant]
     Route: 048
  4. PAROXETINE HCL [Concomitant]
     Route: 048
  5. AMLODIPINE [Concomitant]
     Route: 048

REACTIONS (12)
  - BACK PAIN [None]
  - CARDIAC ENZYMES INCREASED [None]
  - CATHETERISATION CARDIAC ABNORMAL [None]
  - CHEST DISCOMFORT [None]
  - CHEST PAIN [None]
  - DYSPNOEA [None]
  - HEAD DISCOMFORT [None]
  - HYPOAESTHESIA [None]
  - MUSCLE SPASMS [None]
  - NAUSEA [None]
  - PAIN [None]
  - RETCHING [None]
